FAERS Safety Report 7889018-4 (Version None)
Quarter: 2011Q4

REPORT INFORMATION
  Report Type: 
  Country: None (occurrence: None)
  Receive Date: 20111101
  Receipt Date: 20111021
  Transmission Date: 20120403
  Serious: Yes (Other)
  Sender: FDA-Public Use
  Company Number: AUR-APL-2011-05587

PATIENT
  Age: 29 Year
  Sex: Female
  Weight: 83.9 kg

DRUGS (5)
  1. ATORVASTATIN CALCIUM [Suspect]
     Indication: PRODUCT USED FOR UNKNOWN INDICATION
     Dosage: 20
  2. GALVUS (VILDAGLIPTIN) [Suspect]
     Indication: DIABETES MELLITUS
     Dosage: 50 MG
     Dates: start: 20110101
  3. METFORMIN HCL [Suspect]
     Indication: BLOOD GLUCOSE INCREASED
     Dosage: 500 MG, 1 D
     Dates: start: 20110101
  4. INSULIN ASPART (INSULIN ASPART) [Suspect]
     Indication: PRODUCT USED FOR UNKNOWN INDICATION
  5. INSULIN DETEMIR (INSULIN DETERMIR) [Suspect]
     Indication: PRODUCT USED FOR UNKNOWN INDICATION

REACTIONS (3)
  - HYPOGLYCAEMIA [None]
  - BLOOD GLUCOSE INCREASED [None]
  - GASTRIC DISORDER [None]
